FAERS Safety Report 6546047-0 (Version None)
Quarter: 2010Q1

REPORT INFORMATION
  Report Type: 
  Country: None (occurrence: None)
  Receive Date: 20100119
  Receipt Date: 20100104
  Transmission Date: 20100710
  Serious: Yes (Death, Hospitalization)
  Sender: FDA-Public Use
  Company Number: 2009AC000066

PATIENT
  Age: 54 Year
  Sex: Female

DRUGS (26)
  1. DIGOXIN [Suspect]
     Dosage: 0.125 MG;QD;PO
     Route: 048
     Dates: start: 20050501
  2. DIGOXIN [Suspect]
     Dosage: 0.25 MG;QD;PO
     Route: 048
  3. DEPO-MEDROL [Concomitant]
  4. MARCAINE [Concomitant]
  5. ALLOPURINOL [Concomitant]
  6. ALTACE [Concomitant]
  7. DIOVAN [Concomitant]
  8. MAGNESIUM OXIDE [Concomitant]
  9. LASIX [Concomitant]
  10. PROTONIX [Concomitant]
  11. WELLBUTRIN [Concomitant]
  12. BIDIL [Concomitant]
  13. TOPROL-XL [Concomitant]
  14. ASPIRIN [Concomitant]
  15. KEFLEX [Concomitant]
  16. URELLE [Concomitant]
  17. INSULIN [Concomitant]
  18. GLUCOPHAGE [Concomitant]
  19. ACTOS [Concomitant]
  20. * METOPROLOL [Concomitant]
  21. VYTORIN [Concomitant]
  22. BUPROPION [Concomitant]
  23. BIDIL [Concomitant]
  24. MAGNESIUM OXIDE [Concomitant]
  25. DIOVAN [Concomitant]
  26. FUROSEMIDE [Concomitant]

REACTIONS (15)
  - BLOOD URIC ACID INCREASED [None]
  - CALCULUS URETERIC [None]
  - CARDIAC FAILURE CONGESTIVE [None]
  - DIABETES MELLITUS [None]
  - ECONOMIC PROBLEM [None]
  - FLANK PAIN [None]
  - GASTROOESOPHAGEAL REFLUX DISEASE [None]
  - HYDRONEPHROSIS [None]
  - HYPERTENSION [None]
  - INJURY [None]
  - MENISCUS LESION [None]
  - PULMONARY GRANULOMA [None]
  - RENAL DISORDER [None]
  - URETERIC STENOSIS [None]
  - VOMITING [None]
